FAERS Safety Report 7764505-8 (Version None)
Quarter: 2011Q3

REPORT INFORMATION
  Report Type: 
  Country: None (occurrence: None)
  Receive Date: 20110921
  Receipt Date: 20110914
  Transmission Date: 20111222
  Serious: Yes (Other)
  Sender: FDA-Public Use
  Company Number: FR-BAXTER-2011BH029432

PATIENT
  Age: 51 Year
  Sex: Female

DRUGS (7)
  1. CYCLOPHOSPHAMIDE [Suspect]
     Route: 042
     Dates: start: 20110902, end: 20110902
  2. EPIRUBICIN HYDROCHLORIDE [Suspect]
     Route: 042
     Dates: start: 20110902, end: 20110902
  3. EPIRUBICIN HYDROCHLORIDE [Suspect]
     Indication: BREAST CANCER METASTATIC
     Route: 042
     Dates: start: 20110812, end: 20110812
  4. CYCLOPHOSPHAMIDE [Suspect]
     Indication: BREAST CANCER METASTATIC
     Route: 042
     Dates: start: 20110812, end: 20110812
  5. FLUOROURACIL [Suspect]
     Route: 042
     Dates: start: 20110902, end: 20110902
  6. FLUOROURACIL [Suspect]
     Indication: BREAST CANCER METASTATIC
     Route: 042
     Dates: start: 20110812, end: 20110812
  7. LENOGRASTIM [Suspect]
     Indication: PROPHYLAXIS
     Route: 065
     Dates: start: 20110816, end: 20110817

REACTIONS (3)
  - THROMBOCYTOPENIA [None]
  - PURPURA [None]
  - ANAEMIA [None]
